FAERS Safety Report 10072677 (Version 1)
Quarter: 2014Q2

REPORT INFORMATION
  Report Type: Report from Study
  Country: BR (occurrence: BR)
  Receive Date: 20140411
  Receipt Date: 20140411
  Transmission Date: 20141212
  Serious: Yes (Other)
  Sender: FDA-Public Use
  Company Number: PHHY2014BR042404

PATIENT
  Sex: Female
  Weight: 72 kg

DRUGS (3)
  1. FORASEQ [Suspect]
     Indication: BRONCHITIS
     Dosage: 1 DF, FROM 19 YEARS AGO
     Route: 055
  2. FORASEQ [Suspect]
     Indication: OFF LABEL USE
  3. BENICAR [Concomitant]
     Indication: BLOOD PRESSURE ABNORMAL
     Dosage: 40 MG, UNK

REACTIONS (5)
  - Emphysema [Unknown]
  - Chorioretinopathy [Unknown]
  - Vision blurred [Unknown]
  - Retinal tear [Unknown]
  - Fatigue [Unknown]
